FAERS Safety Report 9377898 (Version 5)
Quarter: 2013Q3

REPORT INFORMATION
  Report Type: Report from Study
  Country: BR (occurrence: BR)
  Receive Date: 20130701
  Receipt Date: 20130830
  Transmission Date: 20140515
  Serious: Yes (Other)
  Sender: FDA-Public Use
  Company Number: PHHY2013BR067107

PATIENT
  Sex: Female
  Weight: 93 kg

DRUGS (11)
  1. SANDOSTATIN LAR [Suspect]
     Indication: ACROMEGALY
     Dosage: 20 MG, EVERY 28 DAYS
     Route: 030
  2. SANDOSTATIN LAR [Suspect]
     Dosage: 20 MG, QMO
     Route: 030
  3. AMLODIPINE BESYLATE [Concomitant]
     Indication: HYPERTENSION
     Dosage: 2 DF, DAILY
     Route: 048
  4. ENALAPRIL MALEATE [Concomitant]
     Indication: HYPERTENSION
     Dosage: 2 UKN, UNK
     Route: 048
  5. ENALAPRIL MALEATE [Concomitant]
     Dosage: 1 DF, UNK
     Route: 048
  6. ENALAPRIL MALEATE [Concomitant]
     Dosage: 1 DF, BID (1 TABLET AT LUNCH AND 1 TABLET AT BEDTIME)
     Route: 048
  7. ENALAPRIL MALEATE [Concomitant]
     Dosage: 2 DF, DAILY
     Route: 048
  8. SIMVASTATIN [Concomitant]
     Indication: BLOOD CHOLESTEROL
     Dosage: 1 DF, UNK
  9. SIMVASTATIN [Concomitant]
     Dosage: 0.5 DF, DAILY
     Route: 048
  10. VALIUM [Concomitant]
     Indication: INSOMNIA
     Dosage: 1 DF, DAILY
     Route: 048
  11. GARLIC [Concomitant]
     Dosage: 1 DF, DAILY
     Route: 048

REACTIONS (28)
  - Suicidal ideation [Not Recovered/Not Resolved]
  - Neoplasm [Recovering/Resolving]
  - Cataract [Not Recovered/Not Resolved]
  - Hypoaesthesia [Not Recovered/Not Resolved]
  - Fall [Not Recovered/Not Resolved]
  - Memory impairment [Unknown]
  - Gait disturbance [Not Recovered/Not Resolved]
  - Local swelling [Not Recovered/Not Resolved]
  - Muscle disorder [Not Recovered/Not Resolved]
  - Hormone level abnormal [Not Recovered/Not Resolved]
  - Hearing impaired [Not Recovered/Not Resolved]
  - Electromyogram abnormal [Unknown]
  - Weight decreased [Not Recovered/Not Resolved]
  - Body height decreased [Not Recovered/Not Resolved]
  - Labyrinthitis [Recovered/Resolved]
  - Hypotonia [Not Recovered/Not Resolved]
  - Haemorrhage [Unknown]
  - Blood cholesterol increased [Recovered/Resolved]
  - Blood creatinine increased [Recovered/Resolved]
  - Injection site haemorrhage [Recovered/Resolved]
  - Weight increased [Unknown]
  - Gastrointestinal disorder [Unknown]
  - Musculoskeletal stiffness [Not Recovered/Not Resolved]
  - Disturbance in attention [Not Recovered/Not Resolved]
  - Balance disorder [Not Recovered/Not Resolved]
  - Vision blurred [Unknown]
  - Depressed mood [Unknown]
  - Dizziness [Unknown]
